FAERS Safety Report 21021433 (Version 2)
Quarter: 2022Q4

REPORT INFORMATION
  Report Type: Spontaneous
  Country: US (occurrence: US)
  Receive Date: 20220629
  Receipt Date: 20221006
  Transmission Date: 20230112
  Serious: Yes (Other)
  Sender: FDA-Public Use
  Company Number: US-BRISTOL-MYERS SQUIBB COMPANY-2022-061110

PATIENT
  Age: 71 Year
  Sex: Male

DRUGS (1)
  1. REVLIMID [Suspect]
     Active Substance: LENALIDOMIDE
     Indication: Plasma cell myeloma
     Dosage: TAKE 1 CAPSULE BY MOUTH EVERY DAY
     Route: 048

REACTIONS (9)
  - Neuropathy peripheral [Unknown]
  - Cough [Unknown]
  - Nasopharyngitis [Unknown]
  - Decreased activity [Unknown]
  - Neck pain [Unknown]
  - Asthenia [Unknown]
  - Condition aggravated [Unknown]
  - Sleep disorder [Unknown]
  - Terminal insomnia [Unknown]
